FAERS Safety Report 13406522 (Version 3)
Quarter: 2017Q2

REPORT INFORMATION
  Report Type: Spontaneous
  Country: US (occurrence: US)
  Receive Date: 20170405
  Receipt Date: 20170501
  Transmission Date: 20170830
  Serious: Yes (Hospitalization)
  Sender: FDA-Public Use
  Company Number: US-BAUSCH-BL-2017-008436

PATIENT
  Age: 67 Year
  Sex: Female

DRUGS (1)
  1. XIFAXAN [Suspect]
     Active Substance: RIFAXIMIN
     Indication: HEPATIC CIRRHOSIS
     Route: 048

REACTIONS (5)
  - Gait disturbance [Unknown]
  - Hypophagia [Unknown]
  - Balance disorder [Unknown]
  - Meningioma [Unknown]
  - Asthenia [Unknown]

NARRATIVE: CASE EVENT DATE: 201410
